FAERS Safety Report 8249531 (Version 5)
Quarter: 2013Q4

REPORT INFORMATION
  Report Type: Report from Study
  Country: JP (occurrence: JP)
  Receive Date: 20111117
  Receipt Date: 20131023
  Transmission Date: 20140711
  Serious: Yes (Death, Hospitalization, Other)
  Sender: FDA-Public Use
  Company Number: PHHY2010JP58113

PATIENT
  Age: 72 Year
  Sex: 0
  Weight: 60 kg

DRUGS (16)
  1. AMN107 [Suspect]
     Indication: CHRONIC MYELOID LEUKAEMIA
     Dosage: 800 MG, DAILY
     Route: 048
     Dates: start: 20100217
  2. GASTER D [Concomitant]
     Indication: PROPHYLAXIS
     Dosage: 40 MG
     Route: 048
     Dates: start: 200707, end: 20110211
  3. BIOFERMIN [Concomitant]
     Indication: PROPHYLAXIS
     Dosage: 2 DF, UNK
     Route: 048
     Dates: start: 200707
  4. BIOFERMIN [Concomitant]
     Dosage: 3 DF
     Route: 048
  5. BIOFERMIN [Concomitant]
     Dosage: 2 DF, UNK
     Route: 048
     Dates: end: 20110627
  6. ZYLORIC [Concomitant]
     Indication: PROPHYLAXIS
     Dosage: 100 MG, UNK
     Route: 048
     Dates: start: 200707, end: 20110627
  7. AMARYL [Concomitant]
     Indication: TYPE 1 DIABETES MELLITUS
     Dosage: 2 MG, UNK
     Route: 048
     Dates: end: 20100315
  8. LASIX [Concomitant]
     Dosage: 80 MG, UNK
     Route: 048
     Dates: start: 200707, end: 20100412
  9. ALDACTONE-A [Concomitant]
     Dosage: 25 MG, UNK
     Route: 048
     Dates: start: 200707, end: 20100412
  10. INSULIN DETEMIR [Concomitant]
     Indication: TYPE 1 DIABETES MELLITUS
     Route: 058
     Dates: start: 20070318
  11. LEVEMIR [Concomitant]
     Indication: TYPE 1 DIABETES MELLITUS
     Dosage: 12 IU, UNK
     Dates: start: 20100812
  12. LEVEMIR [Concomitant]
     Dosage: 8 IU, UNK
  13. LEVEMIR [Concomitant]
     Dosage: 6 IU, UNK
     Dates: end: 201206
  14. NOVORAPID [Concomitant]
     Indication: TYPE 1 DIABETES MELLITUS
     Dosage: 15 IU, UNK
     Dates: start: 20100812, end: 20110628
  15. GASTER [Concomitant]
     Indication: PROPHYLAXIS
     Dosage: 40 MG, UNK
     Route: 048
     Dates: start: 20110212, end: 20110627
  16. NORVASC [Concomitant]
     Indication: HYPERTENSION
     Dosage: 2.5 MG, UNK
     Route: 048
     Dates: start: 20110727, end: 20121102

REACTIONS (10)
  - Diabetic nephropathy [Fatal]
  - Diabetes mellitus inadequate control [Recovered/Resolved]
  - Lipase increased [Recovering/Resolving]
  - Cerebral infarction [Recovered/Resolved with Sequelae]
  - Anaemia [Not Recovered/Not Resolved]
  - Haemoglobin decreased [Not Recovered/Not Resolved]
  - Blood glucose increased [Recovered/Resolved]
  - Rhabdomyolysis [Recovered/Resolved]
  - Blood alkaline phosphatase increased [Not Recovered/Not Resolved]
  - Myalgia [Unknown]
